FAERS Safety Report 9266748 (Version 2)
Quarter: 2013Q2

REPORT INFORMATION
  Report Type: Spontaneous
  Country: FR (occurrence: FR)
  Receive Date: 20130502
  Receipt Date: 20130510
  Transmission Date: 20140414
  Serious: Yes (Death, Hospitalization)
  Sender: FDA-Public Use
  Company Number: FR-PFIZER INC-2013133745

PATIENT
  Age: 85 Year
  Sex: Male

DRUGS (4)
  1. CORDARONE [Suspect]
     Indication: ATRIAL FIBRILLATION
     Dosage: UNK
     Route: 048
  2. PRADAXA [Interacting]
     Indication: ATRIAL FIBRILLATION
     Dosage: 110 MG, 2X/DAY
     Route: 048
     Dates: start: 20130319
  3. TEMERIT [Concomitant]
     Dosage: UNK
  4. SINEMET [Concomitant]
     Indication: PARKINSON^S DISEASE
     Dosage: 200 MG, 4 TIMES A DAY

REACTIONS (3)
  - Drug interaction [Fatal]
  - Rectal haemorrhage [Fatal]
  - Haemoglobin decreased [Fatal]
